FAERS Safety Report 25982867 (Version 1)
Quarter: 2025Q4

REPORT INFORMATION
  Report Type: Report from Study
  Country: US (occurrence: US)
  Receive Date: 20251031
  Receipt Date: 20251031
  Transmission Date: 20260117
  Serious: Yes (Hospitalization)
  Sender: ABBVIE
  Company Number: US-ABBVIE-6526842

PATIENT
  Age: 29 Year
  Sex: Male

DRUGS (1)
  1. SKYRIZI [Suspect]
     Active Substance: RISANKIZUMAB-RZAA
     Indication: Psoriasis
     Dosage: TIME INTERVAL: TOTAL: FORM STRENGTH 150MG/ML ON WEEK 0
     Route: 058
     Dates: start: 20251010, end: 20251010

REACTIONS (2)
  - Vomiting [Unknown]
  - Exposure via inhalation [Unknown]

NARRATIVE: CASE EVENT DATE: 20250101
